FAERS Safety Report 17089090 (Version 1)
Quarter: 2019Q4

REPORT INFORMATION
  Report Type: Spontaneous
  Country: US (occurrence: US)
  Receive Date: 20191128
  Receipt Date: 20191128
  Transmission Date: 20200122
  Serious: Yes (Hospitalization)
  Sender: FDA-Public Use
  Company Number: US-ASTRAZENECA-2019SF66067

PATIENT
  Age: 76 Year
  Sex: Female
  Weight: 66.7 kg

DRUGS (3)
  1. IBRANCE [Suspect]
     Active Substance: PALBOCICLIB
     Indication: METASTASES TO BONE
     Dosage: 100 MG- DAILY. DAYS 1-21 Q28 DAYS
     Route: 048
     Dates: start: 20190812, end: 201909
  2. DENOSUMAB [Concomitant]
     Active Substance: DENOSUMAB
     Dosage: COUPLE OF YEARS AGO, 1DF- EVERY MORNING.
  3. FASLODEX [Suspect]
     Active Substance: FULVESTRANT
     Dosage: UNKNOWN
     Route: 030
     Dates: start: 201901, end: 201908

REACTIONS (9)
  - Syncope [Recovered/Resolved]
  - Fatigue [Not Recovered/Not Resolved]
  - Haemoglobin decreased [Recovering/Resolving]
  - White blood cell count decreased [Recovering/Resolving]
  - Malaise [Not Recovered/Not Resolved]
  - Asthenia [Not Recovered/Not Resolved]
  - Platelet count decreased [Recovering/Resolving]
  - Dizziness [Not Recovered/Not Resolved]
  - Pneumonia [Unknown]

NARRATIVE: CASE EVENT DATE: 20191102
